FAERS Safety Report 7971628-7 (Version None)
Quarter: 2011Q4

REPORT INFORMATION
  Report Type: 
  Country: None (occurrence: None)
  Receive Date: 20111212
  Receipt Date: 20111202
  Transmission Date: 20120403
  Serious: Yes (Hospitalization)
  Sender: FDA-Public Use
  Company Number: FR-JNJFOC-20111112493

PATIENT
  Age: 67 Year
  Sex: Female
  Weight: 107 kg

DRUGS (10)
  1. XARELTO [Suspect]
     Indication: KNEE ARTHROPLASTY
     Route: 048
     Dates: start: 20110929, end: 20111009
  2. LASIX [Concomitant]
  3. RAMIPRIL [Concomitant]
  4. ALUMINUM HYDROXIDE AND MAGNESIUM TRISILICATE [Concomitant]
  5. RABEPRAZOLE SODIUM [Concomitant]
  6. IMOVANE [Concomitant]
  7. DOMPERIDONE [Concomitant]
  8. LEVOTHYROXINE SODIUM [Concomitant]
  9. ACETAMINOPHEN AND CODEINE PHOSPHATE [Concomitant]
  10. DAFLON [Concomitant]

REACTIONS (1)
  - DEEP VEIN THROMBOSIS [None]
